FAERS Safety Report 4344779-6 (Version None)
Quarter: 2004Q2

REPORT INFORMATION
  Report Type: 
  Country: None (occurrence: None)
  Receive Date: 20040420
  Receipt Date: 20040407
  Transmission Date: 20050107
  Serious: No
  Sender: FDA-Public Use
  Company Number: 04H-066-0256395-00

PATIENT

DRUGS (5)
  1. LEUCOVORIN CALCIUM [Suspect]
     Indication: CHEMOTHERAPY
     Dosage: 200 MG/M2, ON DAY 2 AND 3, EVERY 2 WEEKS, INFUSION, INTRAVENOUS
     Route: 042
  2. IRINOTECAN [Suspect]
     Indication: CHEMOTHERAPY
     Dosage: 150 MG/M2, ON DAY 1, EVERY 2 WEEKS, INFUSION, INTRAVENOUS
     Route: 042
  3. OXALIPLATIN [Suspect]
     Indication: CHEMOTHERAPY
     Dosage: 65 MG/M2, ON DAY 2, EVERY 2 WEEKS, INFUSION, INTRAVENOUS
     Route: 042
  4. FLUOROURACIL [Suspect]
     Indication: CHEMOTHERAPY
     Dosage: SEE IMAGE
     Route: 042
  5. 5-HYDROXYTRYPTAMINE-3-RECEPTOR ANTAGONIST [Concomitant]

REACTIONS (1)
  - NEUTROPENIA [None]
